FAERS Safety Report 11475718 (Version 2)
Quarter: 2015Q3

REPORT INFORMATION
  Report Type: Spontaneous
  Country: US (occurrence: US)
  Receive Date: 20150909
  Receipt Date: 20150919
  Transmission Date: 20151125
  Serious: Yes (Other)
  Sender: FDA-Public Use
  Company Number: US-AMGEN-USASP2015091313

PATIENT
  Age: 80 Year
  Sex: Female
  Weight: 60 kg

DRUGS (1)
  1. PROLIA [Suspect]
     Active Substance: DENOSUMAB
     Indication: OSTEOPOROSIS
     Dosage: UNK, Q6MO
     Route: 058

REACTIONS (5)
  - Gastric disorder [Unknown]
  - Irritable bowel syndrome [Unknown]
  - Abdominal pain upper [Recovered/Resolved]
  - Pain in extremity [Unknown]
  - Gastric ulcer [Unknown]

NARRATIVE: CASE EVENT DATE: 2014
